FAERS Safety Report 11634761 (Version 2)
Quarter: 2016Q4

REPORT INFORMATION
  Report Type: Report from Study
  Country: BR (occurrence: BR)
  Receive Date: 20151015
  Receipt Date: 20161027
  Transmission Date: 20170206
  Serious: Yes (Other)
  Sender: FDA-Public Use
  Company Number: PHHY2015BR115236

PATIENT
  Sex: Male
  Weight: 26 kg

DRUGS (3)
  1. HIDROXIUREA [Concomitant]
     Active Substance: HYDROXYUREA
     Indication: PRODUCT USED FOR UNKNOWN INDICATION
     Route: 065
  2. ACIDO FOLICO//FOLIC ACID [Concomitant]
     Active Substance: FOLIC ACID
     Indication: PRODUCT USED FOR UNKNOWN INDICATION
     Route: 065
  3. EXJADE [Suspect]
     Active Substance: DEFERASIROX
     Indication: SICKLE CELL ANAEMIA
     Dosage: 10 MG/KG, QD (1 TABLET AFTER DINNER EVERYDAY)
     Route: 065
     Dates: start: 2013

REACTIONS (7)
  - Haematocrit decreased [Unknown]
  - Blister [Unknown]
  - Fragile X syndrome [Unknown]
  - Gallbladder pain [Recovered/Resolved]
  - Gallbladder disorder [Unknown]
  - Urinary tract disorder [Unknown]
  - Abdominal pain upper [Unknown]
